FAERS Safety Report 10167242 (Version 1)
Quarter: 2014Q2

REPORT INFORMATION
  Report Type: Spontaneous
  Country: US (occurrence: None)
  Receive Date: 20140509
  Receipt Date: 20140509
  Transmission Date: 20141212
  Serious: Yes (Disabling, Other)
  Sender: FDA-Public Use
  Company Number: None

PATIENT
  Sex: 0

DRUGS (1)
  1. AZITHROMYCIN 500MG PAKTAB SANDOZ [Suspect]

REACTIONS (2)
  - Abdominal pain [None]
  - Diarrhoea [None]
